FAERS Safety Report 6114326-7 (Version None)
Quarter: 2009Q1

REPORT INFORMATION
  Report Type: 
  Country: None (occurrence: None)
  Receive Date: 20090312
  Receipt Date: 20090130
  Transmission Date: 20090719
  Serious: No
  Sender: FDA-Public Use
  Company Number: US-ABBOTT-09P-163-0501206-00

PATIENT
  Sex: Female
  Weight: 108.05 kg

DRUGS (1)
  1. DEPAKOTE [Suspect]
     Indication: ANXIETY
     Route: 048
     Dates: start: 20030101, end: 20030101

REACTIONS (1)
  - CONFUSIONAL STATE [None]
